FAERS Safety Report 5414764-1 (Version None)
Quarter: 2007Q3

REPORT INFORMATION
  Report Type: 
  Country: None (occurrence: None)
  Receive Date: 20070813
  Receipt Date: 20070802
  Transmission Date: 20080115
  Serious: Yes (Other)
  Sender: FDA-Public Use
  Company Number: 2007SP015630

PATIENT
  Age: 63 Year
  Sex: Male

DRUGS (1)
  1. NOXAFIL [Suspect]
     Indication: MUCORMYCOSIS
     Dosage: PO
     Route: 048

REACTIONS (9)
  - ABASIA [None]
  - ACTIVITIES OF DAILY LIVING IMPAIRED [None]
  - ARTHRALGIA [None]
  - ASTHENIA [None]
  - FALL [None]
  - HEMIPARESIS [None]
  - HYPOAESTHESIA [None]
  - MOVEMENT DISORDER [None]
  - PARAESTHESIA [None]
